APPROVED DRUG PRODUCT: HYDROCORTONE
Active Ingredient: HYDROCORTISONE ACETATE
Strength: 1.5%
Dosage Form/Route: OINTMENT;OPHTHALMIC, OTIC
Application: N009018 | Product #003
Applicant: MERCK AND CO INC
Approved: Approved Prior to Jan 1, 1982 | RLD: No | RS: No | Type: DISCN